FAERS Safety Report 5528307-5 (Version None)
Quarter: 2007Q4

REPORT INFORMATION
  Report Type: 
  Country: None (occurrence: None)
  Receive Date: 20071121
  Receipt Date: 20071112
  Transmission Date: 20080405
  Serious: Yes (Hospitalization)
  Sender: FDA-Public Use
  Company Number: 162923USA

PATIENT
  Age: 18 Year
  Sex: Female

DRUGS (2)
  1. PIMOZIDE TABLETS (PIMOZIDE) [Suspect]
     Indication: AUTISM
     Dosage: 1 MG (1 MG, 1 IN 1 D) ORAL
     Route: 048
     Dates: start: 20050601, end: 20070929
  2. PAROXETINE HCL [Suspect]
     Indication: PANIC ATTACK
     Dosage: 10 MG (10 MG, 1 IN 1 D)
     Dates: start: 20070301, end: 20070929

REACTIONS (4)
  - BLOOD CREATINE PHOSPHOKINASE INCREASED [None]
  - DIZZINESS [None]
  - MYALGIA [None]
  - VIRAL INFECTION [None]
